FAERS Safety Report 14754934 (Version 1)
Quarter: 2018Q2

REPORT INFORMATION
  Report Type: Spontaneous
  Country: US (occurrence: US)
  Receive Date: 20180413
  Receipt Date: 20180413
  Transmission Date: 20180711
  Serious: No
  Sender: FDA-Public Use
  Company Number: US-JNJFOC-20180321733

PATIENT
  Age: 73 Year
  Sex: Male
  Weight: 81.65 kg

DRUGS (2)
  1. TYLENOL REGULAR STRENGTH [Suspect]
     Active Substance: ACETAMINOPHEN
     Indication: FRACTURE PAIN
     Dosage: 1 PILL PER DAY AT NIGHT.
     Route: 065
  2. TYLENOL REGULAR STRENGTH [Suspect]
     Active Substance: ACETAMINOPHEN
     Indication: FRACTURE PAIN
     Dosage: 3 OR 4 TABLETS EVERY SIX HOURS, EVERY DAY FOR COUPLE OF WEEKS
     Route: 065

REACTIONS (3)
  - Overdose [Unknown]
  - Incorrect dose administered [Unknown]
  - Product use in unapproved indication [Unknown]
